FAERS Safety Report 9308517 (Version 2)
Quarter: 2013Q2

REPORT INFORMATION
  Report Type: Spontaneous
  Country: US (occurrence: US)
  Receive Date: 20130524
  Receipt Date: 20130604
  Transmission Date: 20140414
  Serious: Yes (Other)
  Sender: FDA-Public Use
  Company Number: US-JNJFOC-20130506429

PATIENT
  Sex: Male
  Weight: 98.88 kg

DRUGS (11)
  1. DURAGESIC [Suspect]
     Indication: PAIN
     Route: 062
     Dates: start: 2003
  2. DURAGESIC MATRIX [Suspect]
     Indication: PAIN
     Route: 062
     Dates: start: 2011, end: 2011
  3. DURAGESIC MATRIX [Suspect]
     Indication: PAIN
     Dosage: A PART OF THE PATCH
     Route: 062
     Dates: start: 201304
  4. DURAGESIC MATRIX [Suspect]
     Indication: PAIN
     Route: 062
     Dates: end: 2011
  5. DURAGESIC MATRIX [Suspect]
     Indication: PAIN
     Route: 062
     Dates: start: 2011, end: 2011
  6. DURAGESIC MATRIX [Suspect]
     Indication: PAIN
     Route: 062
     Dates: start: 2011, end: 2011
  7. DURAGESIC MATRIX [Suspect]
     Indication: PAIN
     Route: 062
     Dates: start: 2011, end: 2011
  8. OXYCODONE-ACETAMINOPHEN [Concomitant]
     Indication: BREAKTHROUGH PAIN
     Dosage: 10/325MG
     Route: 048
     Dates: start: 201207
  9. GLIMEPIRIDE [Concomitant]
     Indication: DIABETES MELLITUS
     Route: 048
     Dates: start: 2002
  10. ATENOLOL [Concomitant]
     Indication: BLOOD PRESSURE
     Route: 048
     Dates: start: 2002
  11. METFORMIN [Concomitant]
     Indication: DIABETES MELLITUS
     Route: 048
     Dates: start: 2002

REACTIONS (21)
  - Blood pressure fluctuation [Recovering/Resolving]
  - Paresis [Recovered/Resolved]
  - Migraine [Recovered/Resolved]
  - Incorrect drug administration duration [Not Recovered/Not Resolved]
  - Motor dysfunction [Recovered/Resolved]
  - Adverse event [Recovering/Resolving]
  - Feeling abnormal [Recovering/Resolving]
  - Expired drug administered [Not Recovered/Not Resolved]
  - Blood glucose abnormal [Recovering/Resolving]
  - Blood triglycerides abnormal [Recovering/Resolving]
  - Incorrect dose administered [Recovered/Resolved]
  - Hypoaesthesia [Recovered/Resolved]
  - Arthralgia [Recovered/Resolved]
  - Intentional drug misuse [Unknown]
  - Asthenia [Recovering/Resolving]
  - Pain [Recovered/Resolved]
  - Drug withdrawal syndrome [Recovering/Resolving]
  - Dizziness [Recovering/Resolving]
  - Wrong technique in drug usage process [Not Recovered/Not Resolved]
  - Pain in extremity [Recovered/Resolved]
  - Tremor [Recovering/Resolving]
